FAERS Safety Report 9637157 (Version 1)
Quarter: 2013Q4

REPORT INFORMATION
  Report Type: Spontaneous
  Country: CM (occurrence: CM)
  Receive Date: 20131022
  Receipt Date: 20131022
  Transmission Date: 20140711
  Serious: Yes (Hospitalization, Other)
  Sender: FDA-Public Use
  Company Number: CM-009507513-1310CMR008253

PATIENT
  Age: 28 Year
  Sex: Female
  Weight: 80 kg

DRUGS (5)
  1. MECTIZAN [Suspect]
     Dosage: 3 TABLETS, ONETIME DOSE
     Route: 048
     Dates: start: 20130826
  2. ALBENDAZOLE [Suspect]
     Dosage: 1 TABLET, ONETIME DOSE
     Route: 048
     Dates: start: 20130826
  3. NEVIRAPINE [Concomitant]
     Dosage: UNK
  4. STAVUDINE [Concomitant]
     Dosage: UNK
  5. LAMIVUDINE [Concomitant]
     Dosage: UNK

REACTIONS (5)
  - Dermatitis exfoliative [Recovered/Resolved]
  - Skin exfoliation [Recovered/Resolved]
  - Odynophagia [Recovered/Resolved]
  - Generalised oedema [Recovered/Resolved]
  - Stevens-Johnson syndrome [Recovered/Resolved]
